FAERS Safety Report 18611410 (Version 2)
Quarter: 2021Q1

REPORT INFORMATION
  Report Type: Spontaneous
  Country: US (occurrence: US)
  Receive Date: 20201214
  Receipt Date: 20210104
  Transmission Date: 20210419
  Serious: Yes (Other)
  Sender: FDA-Public Use
  Company Number: US-PFIZER INC-2020489766

PATIENT
  Sex: Female

DRUGS (3)
  1. COLESTID [Suspect]
     Active Substance: COLESTIPOL HYDROCHLORIDE
     Indication: BILE ACID MALABSORPTION
     Dosage: 1 G
  2. COLESTID [Suspect]
     Active Substance: COLESTIPOL HYDROCHLORIDE
     Indication: INTESTINAL OBSTRUCTION
  3. COLESTID [Suspect]
     Active Substance: COLESTIPOL HYDROCHLORIDE
     Indication: BILE ACID MALABSORPTION

REACTIONS (7)
  - Intentional product use issue [Unknown]
  - Intestinal obstruction [Unknown]
  - Lethargy [Unknown]
  - Constipation [Unknown]
  - Drug intolerance [Unknown]
  - Off label use [Unknown]
  - Diarrhoea [Unknown]
